FAERS Safety Report 9268913 (Version 3)
Quarter: 2013Q3

REPORT INFORMATION
  Report Type: Spontaneous
  Country: US (occurrence: US)
  Receive Date: 20130503
  Receipt Date: 20130724
  Transmission Date: 20140515
  Serious: Yes (Hospitalization, Other)
  Sender: FDA-Public Use
  Company Number: US-AMGEN-USASP2013030534

PATIENT
  Age: 74 Year
  Sex: Female

DRUGS (2)
  1. ENBREL [Suspect]
     Indication: RHEUMATOID ARTHRITIS
     Dosage: 50 MG, QWK
     Route: 058
     Dates: start: 20090601
  2. METHOTREXATE [Concomitant]
     Dosage: UNK UNK, QWK
     Route: 030

REACTIONS (11)
  - Foot fracture [Not Recovered/Not Resolved]
  - Post procedural inflammation [Recovered/Resolved]
  - Laceration [Not Recovered/Not Resolved]
  - Cataract [Recovered/Resolved]
  - Fall [Not Recovered/Not Resolved]
  - Ligament sprain [Not Recovered/Not Resolved]
  - Excoriation [Not Recovered/Not Resolved]
  - Eye injury [Not Recovered/Not Resolved]
  - Wound [Not Recovered/Not Resolved]
  - Skin discolouration [Not Recovered/Not Resolved]
  - Skin injury [Not Recovered/Not Resolved]
